FAERS Safety Report 16531745 (Version 1)
Quarter: 2019Q3

REPORT INFORMATION
  Report Type: Spontaneous
  Country: CN (occurrence: CN)
  Receive Date: 20190705
  Receipt Date: 20190705
  Transmission Date: 20191004
  Serious: Yes (Hospitalization, Other)
  Sender: FDA-Public Use
  Company Number: CN-PFIZER INC-2019281112

PATIENT
  Age: 12 Year
  Sex: Male
  Weight: 62 kg

DRUGS (3)
  1. DIOVAN [Suspect]
     Active Substance: VALSARTAN
     Dosage: 10 DF, 1X/DAY
     Route: 048
     Dates: start: 20190617, end: 20190617
  2. NORVASC [Suspect]
     Active Substance: AMLODIPINE BESYLATE
     Dosage: 10 DF, 1X/DAY
     Route: 048
     Dates: start: 20190617, end: 20190617
  3. A LE XIN [Suspect]
     Active Substance: AZLOCILLIN SODIUM
     Dosage: 10 DF, 1X/DAY
     Route: 048
     Dates: start: 20190617, end: 20190617

REACTIONS (8)
  - Weight increased [Recovering/Resolving]
  - Overdose [Recovering/Resolving]
  - Toxicity to various agents [Recovering/Resolving]
  - Headache [Recovering/Resolving]
  - Nausea [Recovering/Resolving]
  - Conjunctival haemorrhage [Unknown]
  - Dizziness [Unknown]
  - Flushing [Recovering/Resolving]

NARRATIVE: CASE EVENT DATE: 20190617
